FAERS Safety Report 8628920 (Version 5)
Quarter: 2013Q3

REPORT INFORMATION
  Report Type: Spontaneous
  Country: US (occurrence: US)
  Receive Date: 20120621
  Receipt Date: 20130823
  Transmission Date: 20140515
  Serious: Yes (Life-Threatening, Other)
  Sender: FDA-Public Use
  Company Number: US-ASTRAZENECA-2012SE03937

PATIENT
  Age: 49 Year
  Sex: Female
  Weight: 131.5 kg

DRUGS (5)
  1. SEROQUEL [Suspect]
     Indication: SCHIZOAFFECTIVE DISORDER
     Route: 048
  2. SEROQUEL [Suspect]
     Indication: SCHIZOAFFECTIVE DISORDER
     Route: 048
  3. SEROQUEL [Suspect]
     Indication: SCHIZOAFFECTIVE DISORDER
     Route: 048
  4. SEROQUEL [Suspect]
     Indication: SCHIZOAFFECTIVE DISORDER
     Route: 048
  5. SEROQUEL [Suspect]
     Indication: SCHIZOAFFECTIVE DISORDER
     Route: 048

REACTIONS (8)
  - Suicidal ideation [Unknown]
  - Bronchitis [Unknown]
  - Cough [Unknown]
  - Malaise [Unknown]
  - Insomnia [Unknown]
  - Abnormal behaviour [Unknown]
  - Paranoia [Unknown]
  - Drug dose omission [Unknown]
